FAERS Safety Report 17004550 (Version 2)
Quarter: 2020Q1

REPORT INFORMATION
  Report Type: Spontaneous
  Country: JP (occurrence: JP)
  Receive Date: 20191107
  Receipt Date: 20200131
  Transmission Date: 20200409
  Serious: Yes (Other)
  Sender: FDA-Public Use
  Company Number: JP-009507513-1911JPN000198J

PATIENT
  Age: 8 Decade
  Sex: Male

DRUGS (2)
  1. BELSOMRA [Suspect]
     Active Substance: SUVOREXANT
     Dosage: UNK
     Route: 048
     Dates: start: 202001
  2. BELSOMRA [Suspect]
     Active Substance: SUVOREXANT
     Indication: INSOMNIA
     Dosage: 15 MILLIGRAM, QD
     Route: 048
     Dates: start: 201906, end: 201910

REACTIONS (3)
  - Vertigo [Recovered/Resolved]
  - Meniere^s disease [Unknown]
  - Middle insomnia [Unknown]

NARRATIVE: CASE EVENT DATE: 201906
